FAERS Safety Report 5013752-7 (Version None)
Quarter: 2006Q2

REPORT INFORMATION
  Report Type: 
  Country: None (occurrence: None)
  Receive Date: 20060530
  Receipt Date: 20060523
  Transmission Date: 20061013
  Serious: Yes (Death)
  Sender: FDA-Public Use
  Company Number: US-JNJFOC-20060505284

PATIENT
  Age: 4 Year
  Sex: Male

DRUGS (4)
  1. IMODIUM [Suspect]
     Indication: DRUG USE FOR UNKNOWN INDICATION
     Dosage: ^A DOSE^
  2. EX-LAX [Suspect]
     Indication: DRUG USE FOR UNKNOWN INDICATION
     Dosage: AMOUNT UNKNOWN
  3. ROBITUSSIN PEDIATRIC NIGHT RELIEF [Suspect]
  4. ROBITUSSIN PEDIATRIC NIGHT RELIEF [Suspect]
     Indication: DRUG USE FOR UNKNOWN INDICATION
     Dosage: ^RECOMMENDED DOSE^

REACTIONS (1)
  - MULTIPLE DRUG OVERDOSE [None]
